FAERS Safety Report 7514236-4 (Version None)
Quarter: 2011Q2

REPORT INFORMATION
  Report Type: 
  Country: None (occurrence: None)
  Receive Date: 20110531
  Receipt Date: 20110526
  Transmission Date: 20111010
  Serious: Yes (Hospitalization)
  Sender: FDA-Public Use
  Company Number: US-BRISTOL-MYERS SQUIBB COMPANY-15658750

PATIENT
  Age: 59 Year
  Sex: Male
  Weight: 82 kg

DRUGS (12)
  1. DOXYCYLINE HYCLATE [Concomitant]
     Dosage: 1 DF : 1 TAB,100MG TABS
     Route: 048
  2. METFORMIN HCL [Concomitant]
     Dosage: TAB
  3. BENICAR [Concomitant]
     Dosage: AT BEDTIME
  4. ADALIMUMAB [Concomitant]
     Route: 058
  5. FOLIC ACID [Concomitant]
     Dosage: TAB
     Route: 048
  6. METHOTREXATE SODIUM [Concomitant]
     Dosage: INJ 25MG/ML SOLUTION
     Route: 058
  7. ORENCIA [Suspect]
     Indication: RHEUMATOID ARTHRITIS
     Route: 042
     Dates: start: 20110329
  8. VICODIN [Concomitant]
     Indication: PAIN
     Dosage: 1 DF : 1TAB,5-500MG TABLET Q8H,BID
     Route: 048
  9. MULTI-VITAMIN [Concomitant]
     Dosage: 1 DF  : 1TAB
  10. PLAQUENIL [Concomitant]
     Dosage: TAB
     Route: 048
  11. PREDNISONE [Concomitant]
     Dosage: TAB
  12. HYDROCODONE BITARTRATE [Concomitant]

REACTIONS (1)
  - MYOCARDIAL INFARCTION [None]
